FAERS Safety Report 4943682-8 (Version None)
Quarter: 2006Q1

REPORT INFORMATION
  Report Type: 
  Country: None (occurrence: None)
  Receive Date: 20060310
  Receipt Date: 20060223
  Transmission Date: 20060701
  Serious: Yes (Other)
  Sender: FDA-Public Use
  Company Number: 2004S1003547

PATIENT
  Age: 5 Year
  Sex: Male

DRUGS (12)
  1. MERCAPTAMINE BITARTRATE (MERCAPTAMINE BITARTRATE) (50 MG) [Suspect]
     Indication: CYSTINOSIS
     Dosage: SEE IMAGE    ORAL
     Route: 048
     Dates: start: 20010510, end: 20020129
  2. MERCAPTAMINE BITARTRATE (MERCAPTAMINE BITARTRATE) (50 MG) [Suspect]
     Indication: CYSTINOSIS
     Dosage: SEE IMAGE    ORAL
     Route: 048
     Dates: start: 20020130, end: 20030609
  3. MERCAPTAMINE BITARTRATE (MERCAPTAMINE BITARTRATE) (50 MG) [Suspect]
     Indication: CYSTINOSIS
     Dosage: SEE IMAGE    ORAL
     Route: 048
     Dates: start: 20030610, end: 20040621
  4. MERCAPTAMINE BITARTRATE (MERCAPTAMINE BITARTRATE) (50 MG) [Suspect]
     Indication: CYSTINOSIS
     Dosage: SEE IMAGE    ORAL
     Route: 048
     Dates: start: 20040622, end: 20041125
  5. MERCAPTAMINE BITARTRATE (MERCAPTAMINE BITARTRATE) (50 MG) [Suspect]
     Indication: CYSTINOSIS
     Dosage: SEE IMAGE    ORAL
     Route: 048
     Dates: start: 20041126, end: 20041202
  6. MERCAPTAMINE BITARTRATE (MERCAPTAMINE BITARTRATE) (50 MG) [Suspect]
     Indication: CYSTINOSIS
     Dosage: SEE IMAGE    ORAL
     Route: 048
     Dates: start: 20041203
  7. LEVOTHYROXINE SODIUM [Concomitant]
  8. NUTROPIN [Concomitant]
  9. INDOMETHACIN [Concomitant]
  10. L-CARNITINE [Concomitant]
  11. POTASSIUM CITRATE [Concomitant]
  12. MERCAPTAMINE EYE DROPS [Concomitant]

REACTIONS (11)
  - ANGIOPATHY [None]
  - BIOPSY SKIN ABNORMAL [None]
  - BLOOD CREATININE INCREASED [None]
  - CAPILLARY DISORDER [None]
  - ENDOTHELIAL DYSFUNCTION [None]
  - EPIPHYSEAL DISORDER [None]
  - EXCESSIVE SKIN [None]
  - HAEMANGIOMA [None]
  - MASS [None]
  - PURPURA [None]
  - SKIN LESION [None]
